FAERS Safety Report 6996372-4 (Version None)
Quarter: 2010Q3

REPORT INFORMATION
  Report Type: 
  Country: None (occurrence: None)
  Receive Date: 20100918
  Receipt Date: 20090128
  Transmission Date: 20110219
  Serious: No
  Sender: FDA-Public Use
  Company Number: US-WYE-H07962209

PATIENT
  Age: 59 Year
  Sex: Female

DRUGS (6)
  1. PREMPRO [Suspect]
     Indication: MENOPAUSE
     Dosage: 0.625/1.5
     Route: 048
     Dates: start: 20070901, end: 20080101
  2. PREMPRO [Suspect]
     Indication: HORMONE REPLACEMENT THERAPY
  3. DOXEPIN HCL [Concomitant]
     Indication: ANXIETY
     Dosage: UNKNOWN
     Route: 065
  4. DOXEPIN HCL [Concomitant]
     Indication: FEELING JITTERY
  5. PREMPRO [Suspect]
     Dosage: 0.45/1.5
     Route: 048
     Dates: start: 20080101, end: 20080901
  6. PREMPRO [Suspect]

REACTIONS (8)
  - ABDOMINAL DISTENSION [None]
  - ANGER [None]
  - BREAST ENLARGEMENT [None]
  - BREAST TENDERNESS [None]
  - FEELING JITTERY [None]
  - OBSESSIVE-COMPULSIVE DISORDER [None]
  - VULVOVAGINAL MYCOTIC INFECTION [None]
  - WEIGHT INCREASED [None]
